FAERS Safety Report 13844202 (Version 1)
Quarter: 2017Q3

REPORT INFORMATION
  Report Type: Spontaneous
  Country: US (occurrence: US)
  Receive Date: 20170808
  Receipt Date: 20170808
  Transmission Date: 20171127
  Serious: Yes (Death)
  Sender: FDA-Public Use
  Company Number: US-DEPOMED, INC.-US-2016DEP012198

PATIENT

DRUGS (4)
  1. CONZIP [Concomitant]
     Active Substance: TRAMADOL HYDROCHLORIDE
     Indication: MIGRAINE
     Dosage: 100 MG, UNK
     Route: 048
     Dates: start: 20160325
  2. CAMBIA [Suspect]
     Active Substance: DICLOFENAC POTASSIUM
     Indication: PRODUCT USED FOR UNKNOWN INDICATION
     Dosage: 50 MG, SINGLE
     Route: 048
     Dates: start: 20160908, end: 20160920
  3. PROPRANOLOL HCL [Concomitant]
     Active Substance: PROPRANOLOL HYDROCHLORIDE
     Indication: MIGRAINE
     Dosage: 60 MG, UNK
     Route: 048
     Dates: start: 20160907
  4. COQ10 [Concomitant]
     Active Substance: UBIDECARENONE
     Indication: HEADACHE
     Dosage: UNK
     Route: 048
     Dates: start: 20160325

REACTIONS (1)
  - Death [Fatal]

NARRATIVE: CASE EVENT DATE: 20160920
